FAERS Safety Report 7480627-3 (Version None)
Quarter: 2011Q2

REPORT INFORMATION
  Report Type: 
  Country: None (occurrence: None)
  Receive Date: 20110516
  Receipt Date: 20110510
  Transmission Date: 20111010
  Serious: Yes (Life-Threatening, Hospitalization)
  Sender: FDA-Public Use
  Company Number: US-US-EMD SERONO, INC.-232712J10USA

PATIENT
  Sex: Female

DRUGS (2)
  1. BACLOFEN [Concomitant]
     Indication: MULTIPLE SCLEROSIS
     Route: 065
  2. REBIF [Suspect]
     Indication: MULTIPLE SCLEROSIS
     Route: 065
     Dates: start: 20060101, end: 20091201

REACTIONS (3)
  - LIVER FUNCTION TEST ABNORMAL [None]
  - INTESTINAL FUNCTIONAL DISORDER [None]
  - COMA [None]
